FAERS Safety Report 26149423 (Version 1)
Quarter: 2025Q4

REPORT INFORMATION
  Report Type: Report from Study
  Country: EU (occurrence: EU)
  Receive Date: 20251212
  Receipt Date: 20251212
  Transmission Date: 20260117
  Serious: Yes (Other)
  Sender: ROCHE
  Company Number: EU-ROCHE-10000455030

PATIENT
  Age: 84 Year
  Sex: Female

DRUGS (20)
  1. FARICIMAB [Suspect]
     Active Substance: FARICIMAB
     Indication: Neovascular age-related macular degeneration
     Dosage: DOSE CONCENTRATION: 120 MG/ML?ON 13-JUN-2025, SHE RECEIVED MOST RECENT DOSE OF FARICIMAB 6 MG PRIOR TO AE, TOTAL VOLUME PRIOR AE WAS 0.05 ML.
     Dates: start: 20241108
  2. ZOPICLONE [Concomitant]
     Active Substance: ZOPICLONE
     Indication: Sleep disorder
  3. NITROXOLINE [Concomitant]
     Active Substance: NITROXOLINE
     Indication: Urinary tract infection
  4. ROPINIROLE [Concomitant]
     Active Substance: ROPINIROLE
     Indication: Restless legs syndrome
  5. MIRTAZAPINE [Concomitant]
     Active Substance: MIRTAZAPINE
     Indication: Depression
  6. FOLIC ACID [Concomitant]
     Active Substance: FOLIC ACID
  7. PIRACETAM [Concomitant]
     Active Substance: PIRACETAM
     Indication: Dementia
  8. JANUMET [Concomitant]
     Active Substance: METFORMIN HYDROCHLORIDE\SITAGLIPTIN PHOSPHATE
     Indication: Diabetes mellitus
  9. EDOXABAN [Concomitant]
     Active Substance: EDOXABAN
  10. SIMVASTATIN [Concomitant]
     Active Substance: SIMVASTATIN
     Indication: Hypercholesterolaemia
  11. OMEPRAZOLE [Concomitant]
     Active Substance: OMEPRAZOLE
  12. METOPROLOL [Concomitant]
     Active Substance: METOPROLOL
     Indication: Hypertension
  13. HYDROCHLOROTHIAZIDE [Concomitant]
     Active Substance: HYDROCHLOROTHIAZIDE
     Indication: Hypertension
  14. METAMIZOL [Concomitant]
     Active Substance: METAMIZOLE SODIUM
  15. AMLODIPINE BESYLATE [Concomitant]
     Active Substance: AMLODIPINE BESYLATE
     Indication: Hypertension
  16. LACTULOSE [Concomitant]
     Active Substance: LACTULOSE
     Indication: Constipation
  17. PANCREAS POWDER [Concomitant]
     Indication: Pancreatic failure
  18. CHOLECALCIFEROL [Concomitant]
     Active Substance: CHOLECALCIFEROL
  19. LEVOTHYROXINE [Concomitant]
     Active Substance: LEVOTHYROXINE
     Indication: Thyroid disorder
  20. ETORICOXIB [Concomitant]
     Active Substance: ETORICOXIB

REACTIONS (1)
  - Retinal haemorrhage [Unknown]

NARRATIVE: CASE EVENT DATE: 20250616
